FAERS Safety Report 19653694 (Version 1)
Quarter: 2021Q3

REPORT INFORMATION
  Report Type: Spontaneous
  Country: US (occurrence: US)
  Receive Date: 20210803
  Receipt Date: 20210803
  Transmission Date: 20211014
  Serious: No
  Sender: FDA-Public Use
  Company Number: US-PFIZER INC-2021613641

PATIENT
  Age: 67 Year
  Sex: Female

DRUGS (2)
  1. IBRANCE [Suspect]
     Active Substance: PALBOCICLIB
     Dosage: 125 MG
     Dates: start: 20210415
  2. IBRANCE [Suspect]
     Active Substance: PALBOCICLIB
     Dosage: 125 MG
     Dates: start: 20210524

REACTIONS (9)
  - Nausea [Unknown]
  - Malaise [Unknown]
  - Therapeutic response unexpected [Unknown]
  - Sluggishness [Unknown]
  - Fatigue [Recovered/Resolved]
  - Dizziness [Unknown]
  - Asthenia [Unknown]
  - White blood cell count decreased [Unknown]
  - Neutrophil count increased [Unknown]

NARRATIVE: CASE EVENT DATE: 2021
